FAERS Safety Report 12453338 (Version 2)
Quarter: 2024Q2

REPORT INFORMATION
  Report Type: Spontaneous
  Country: US (occurrence: US)
  Receive Date: 20160609
  Receipt Date: 20240404
  Transmission Date: 20240716
  Serious: Yes (Life-Threatening, Hospitalization)
  Sender: FDA-Public Use
  Company Number: US-MLMSERVICE-20160601-0300252-1

PATIENT
  Age: 5 Year
  Sex: Male

DRUGS (3)
  1. DEXAMETHASONE [Suspect]
     Active Substance: DEXAMETHASONE
     Indication: B precursor type acute leukaemia
     Dosage: 5-DAY COURSE
     Route: 048
  2. MERCAPTOPURINE [Suspect]
     Active Substance: MERCAPTOPURINE
     Indication: B precursor type acute leukaemia
     Dosage: MAINTENANCE CHEMOTHERAPY
     Route: 065
  3. METHOTREXATE [Suspect]
     Active Substance: METHOTREXATE
     Indication: B precursor type acute leukaemia
     Dosage: MAINTENANCE CHEMOTHERAPY
     Route: 065

REACTIONS (3)
  - Respiratory distress [Recovered/Resolved]
  - Shock [Recovered/Resolved]
  - Pneumocystis jirovecii pneumonia [Recovered/Resolved]
